FAERS Safety Report 9130100 (Version 4)
Quarter: 2013Q2

REPORT INFORMATION
  Report Type: Report from Study
  Country: KR (occurrence: KR)
  Receive Date: 20130228
  Receipt Date: 20130415
  Transmission Date: 20140414
  Serious: Yes (Life-Threatening, Hospitalization)
  Sender: FDA-Public Use
  Company Number: KR-BAYER-2013-022462

PATIENT
  Age: 56 Year
  Sex: Male
  Weight: 53 kg

DRUGS (3)
  1. SORAFENIB (RAF KINASE INHIBITOR) [Suspect]
     Indication: GASTRIC CANCER
     Dosage: 400 MG, BID
     Dates: start: 20130215, end: 20130219
  2. CAPECITABINE [Suspect]
     Indication: GASTRIC CANCER
     Dosage: 1300 MG, BID
     Dates: start: 20130215, end: 20130219
  3. CISPLATIN [Suspect]
     Indication: GASTRIC CANCER
     Dosage: 101 MG, QD
     Dates: start: 20130215, end: 20130215

REACTIONS (7)
  - Cerebral infarction [Not Recovered/Not Resolved]
  - Haematochezia [Recovered/Resolved]
  - Hemiparesis [Not Recovered/Not Resolved]
  - Hemisensory neglect [Not Recovered/Not Resolved]
  - VIIth nerve paralysis [Not Recovered/Not Resolved]
  - Asthenia [None]
  - Somnolence [None]
